FAERS Safety Report 9909763 (Version 3)
Quarter: 2014Q4

REPORT INFORMATION
  Report Type: Spontaneous
  Country: US (occurrence: None)
  Receive Date: 20140212
  Receipt Date: 20141112
  Transmission Date: 20150529
  Serious: Yes (Disabling)
  Sender: FDA-Public Use
  Company Number: 2014-US-001181

PATIENT
  Age: 47 Year
  Sex: Male
  Weight: 77.1 kg

DRUGS (3)
  1. TEMAZEPAM (TEMAZEPAM) [Concomitant]
     Active Substance: TEMAZEPAM
  2. XYREM [Suspect]
     Active Substance: SODIUM OXYBATE
     Indication: NARCOLEPSY
     Route: 048
     Dates: start: 200604, end: 2006
  3. LORAZEPAM (LORAZEPAM) [Concomitant]
     Active Substance: LORAZEPAM

REACTIONS (3)
  - Heart valve replacement [None]
  - Impaired work ability [None]
  - Arrhythmia [None]

NARRATIVE: CASE EVENT DATE: 2012
